FAERS Safety Report 23097226 (Version 2)
Quarter: 2023Q4

REPORT INFORMATION
  Report Type: Spontaneous
  Country: US (occurrence: US)
  Receive Date: 20231023
  Receipt Date: 20231201
  Transmission Date: 20240110
  Serious: Yes (Hospitalization, Other)
  Sender: FDA-Public Use
  Company Number: US-Stemline Therapeutics, Inc.-2023ST003827

PATIENT
  Age: 78 Year
  Sex: Female

DRUGS (2)
  1. ORSERDU [Suspect]
     Active Substance: ELACESTRANT
     Indication: Product used for unknown indication
     Dosage: 345 MG, ONCE A DAY
     Route: 048
     Dates: start: 20230629
  2. ORSERDU [Suspect]
     Active Substance: ELACESTRANT
     Dosage: 345 MG, ORAL, ONCE A DAY
     Route: 048
     Dates: start: 20230629

REACTIONS (15)
  - Cardiac flutter [Unknown]
  - Angina pectoris [Unknown]
  - Hypertension [Unknown]
  - Pain [Unknown]
  - Vision blurred [Unknown]
  - Fatigue [Unknown]
  - Dizziness [Unknown]
  - Asthenia [Unknown]
  - Dyspnoea [Unknown]
  - Illness [Unknown]
  - Feeling abnormal [Unknown]
  - Bone pain [Unknown]
  - Product dose omission issue [Unknown]
  - Heart rate increased [Unknown]
  - Dehydration [Unknown]
